FAERS Safety Report 5913415-7 (Version None)
Quarter: 2008Q4

REPORT INFORMATION
  Report Type: 
  Country: None (occurrence: None)
  Receive Date: 20081009
  Receipt Date: 20081001
  Transmission Date: 20090506
  Serious: Yes (Death, Other)
  Sender: FDA-Public Use
  Company Number: US-ABBOTT-08P-163-0478883-00

PATIENT
  Sex: Female
  Weight: 97.1 kg

DRUGS (3)
  1. KALETRA [Suspect]
     Indication: GLIOBLASTOMA
     Dosage: 400/100 MG
     Route: 048
     Dates: start: 20080724, end: 20080908
  2. DEXAMETHASONE [Concomitant]
     Indication: BRAIN NEOPLASM
     Route: 048
     Dates: start: 20080616
  3. ESOMEPRAZOLE MAGNESIUM [Concomitant]
     Indication: PROPHYLAXIS AGAINST GASTROINTESTINAL ULCER
     Route: 048

REACTIONS (3)
  - BLOOD POTASSIUM DECREASED [None]
  - BRAIN NEOPLASM [None]
  - DEEP VEIN THROMBOSIS [None]
